FAERS Safety Report 12246950 (Version 1)
Quarter: 2016Q2

REPORT INFORMATION
  Report Type: Spontaneous
  Country: FR (occurrence: FR)
  Receive Date: 20160407
  Receipt Date: 20160407
  Transmission Date: 20160815
  Serious: Yes (Other)
  Sender: FDA-Public Use
  Company Number: FR-MYLANLABS-2016M1013975

PATIENT

DRUGS (1)
  1. LEVONORGESTREL MYLAN [Suspect]
     Active Substance: LEVONORGESTREL
     Indication: CONTRACEPTION

REACTIONS (3)
  - Drug ineffective [Unknown]
  - Pregnancy on contraceptive [Unknown]
  - Device breakage [None]
